FAERS Safety Report 9868936 (Version 9)
Quarter: 2016Q4

REPORT INFORMATION
  Report Type: Spontaneous
  Country: JP (occurrence: JP)
  Receive Date: 20140204
  Receipt Date: 20161208
  Transmission Date: 20170207
  Serious: Yes (Other)
  Sender: FDA-Public Use
  Company Number: JP-ROCHE-1344121

PATIENT
  Age: 39 Year
  Sex: Female
  Weight: 55 kg

DRUGS (5)
  1. THEO-DUR [Concomitant]
     Active Substance: THEOPHYLLINE ANHYDROUS
     Indication: ASTHMA
     Dosage: 1 DF, BID
     Route: 048
     Dates: start: 2008
  2. ADOAIR [Concomitant]
     Active Substance: FLUTICASONE PROPIONATE\SALMETEROL XINAFOATE
     Indication: ASTHMA
     Dosage: 1 DF, BID
     Route: 055
  3. XOLAIR [Suspect]
     Active Substance: OMALIZUMAB
     Indication: ASTHMA
     Dosage: 150 MG EVERY 4 WEEKS
     Route: 058
     Dates: start: 20120927, end: 20130902
  4. ONON [Concomitant]
     Active Substance: PRANLUKAST
     Indication: ASTHMA
     Dosage: 2 DF, BID
     Route: 048
     Dates: start: 2008
  5. FERRUM (JAPAN) [Concomitant]
     Indication: ANAEMIA
     Dosage: 100 MG, QD
     Route: 048
     Dates: start: 20130313

REACTIONS (8)
  - Autoimmune thyroiditis [Not Recovered/Not Resolved]
  - Sarcoidosis [Unknown]
  - Scleritis [Recovering/Resolving]
  - Goitre [Recovering/Resolving]
  - Urticaria [Unknown]
  - Platelet count increased [Unknown]
  - Asthma [Unknown]
  - Oedema peripheral [Not Recovered/Not Resolved]

NARRATIVE: CASE EVENT DATE: 20130107
